FAERS Safety Report 12691435 (Version 3)
Quarter: 2016Q3

REPORT INFORMATION
  Report Type: Spontaneous
  Country: AU (occurrence: AU)
  Receive Date: 20160826
  Receipt Date: 20160926
  Transmission Date: 20161109
  Serious: Yes (Other)
  Sender: FDA-Public Use
  Company Number: AU-PFIZER INC-2016400740

PATIENT
  Age: 57 Year
  Sex: Female

DRUGS (2)
  1. XELJANZ [Interacting]
     Active Substance: TOFACITINIB CITRATE
     Indication: PSORIASIS
  2. XELJANZ [Suspect]
     Active Substance: TOFACITINIB CITRATE
     Indication: RHEUMATOID ARTHRITIS
     Dosage: 5 MG, 2X/DAY (MORNING AND NIGHT)
     Dates: start: 201604, end: 20160821

REACTIONS (8)
  - Influenza [Unknown]
  - Feeling abnormal [Unknown]
  - Emotional disorder [Unknown]
  - Alcohol interaction [Unknown]
  - Abnormal faeces [Unknown]
  - Irritability [Unknown]
  - Circulatory collapse [Unknown]
  - Abdominal discomfort [Unknown]

NARRATIVE: CASE EVENT DATE: 20160821
